FAERS Safety Report 25818674 (Version 2)
Quarter: 2025Q3

REPORT INFORMATION
  Report Type: Report from Study
  Country: EG (occurrence: EG)
  Receive Date: 20250918
  Receipt Date: 20250930
  Transmission Date: 20251020
  Serious: Yes (Other)
  Sender: NOVARTIS
  Company Number: EG-002147023-NVSC2025EG145671

PATIENT
  Sex: Male
  Weight: 96 kg

DRUGS (17)
  1. LEQVIO [Suspect]
     Active Substance: INCLISIRAN SODIUM
     Indication: Hypercholesterolaemia
     Route: 058
     Dates: start: 202303
  2. EXFORGE [Suspect]
     Active Substance: AMLODIPINE BESYLATE\VALSARTAN
     Indication: Product used for unknown indication
     Dosage: UNK, QD (STARTED 6 MONTHS AGO)
     Route: 048
  3. PLAVIX [Suspect]
     Active Substance: CLOPIDOGREL BISULFATE
     Indication: Coagulopathy
     Dosage: 75 MG, QD (STARTED 3 YEARS AGO)
     Route: 048
  4. PLAVIX [Suspect]
     Active Substance: CLOPIDOGREL BISULFATE
     Indication: Cardiac disorder
     Route: 048
     Dates: start: 20250106
  5. BISOPROLOL FUMARATE [Suspect]
     Active Substance: BISOPROLOL FUMARATE
     Indication: Cardiac contractility modulation therapy
     Dosage: 2.5 MG, QD (STRENGTH: 2.5 MG) (STARTED 3 YEARS AGO)
     Route: 048
  6. BISOPROLOL FUMARATE [Suspect]
     Active Substance: BISOPROLOL FUMARATE
     Dosage: 5 MG, QD (STRENGTH: 5 MG) ( 1 YEAR AFTER THE START DATE OF CONCOR 2.5MG)
     Route: 048
  7. VASTAREL [Suspect]
     Active Substance: TRIMETAZIDINE DIHYDROCHLORIDE
     Indication: Coagulopathy
     Dosage: UNK, BID (STARTED 2 YEARS AGO)
     Route: 048
  8. EZETIMIBE\ROSUVASTATIN [Suspect]
     Active Substance: EZETIMIBE\ROSUVASTATIN
     Indication: Hypercholesterolaemia
     Dosage: 10 MG, QD (TABLET)
     Route: 048
  9. EZETIMIBE\ROSUVASTATIN [Suspect]
     Active Substance: EZETIMIBE\ROSUVASTATIN
     Route: 065
  10. RANEXA [Suspect]
     Active Substance: RANOLAZINE
     Indication: Hypercholesterolaemia
     Dosage: 375 MG, QD (STRENGTH: 375 MG) (2 YEARS AGO)
     Route: 048
  11. ICOSAPENT ETHYL [Suspect]
     Active Substance: ICOSAPENT ETHYL
     Indication: Hypercholesterolaemia
     Dosage: UNK, BID (STARTED 3 YEARS AGO AND STOPPED 2 YEARS AGO)
     Route: 048
  12. ICOSAPENT ETHYL [Suspect]
     Active Substance: ICOSAPENT ETHYL
     Dosage: UNK, QD, TABLET (2 MONTHS AGO)
     Route: 048
  13. FENOFIBRATE [Suspect]
     Active Substance: FENOFIBRATE
     Indication: Hypercholesterolaemia
     Dosage: UNK, QD, TABLET (6 MONTHS AGO)
     Route: 048
  14. SYNJARDY [Suspect]
     Active Substance: EMPAGLIFLOZIN\METFORMIN HYDROCHLORIDE
     Indication: Diabetes mellitus
     Dosage: 12.5 MG, QD (STRENGTH: 12.5/1000 MG) (STARTED 2 MONTHS AGO)
     Route: 048
  15. NITROGLYCERIN [Suspect]
     Active Substance: NITROGLYCERIN
     Indication: Product used for unknown indication
     Dosage: UNK, QD (CAPSULE) (6 MONTHS AGO)
     Route: 048
  16. OMEGA 3 [Concomitant]
     Active Substance: CAPSAICIN
     Indication: Supplementation therapy
     Route: 065
  17. VITAMINS [Concomitant]
     Active Substance: VITAMINS
     Indication: Supplementation therapy
     Route: 065

REACTIONS (10)
  - Blood cholesterol increased [Not Recovered/Not Resolved]
  - Diabetes mellitus [Recovering/Resolving]
  - Fatigue [Not Recovered/Not Resolved]
  - Dizziness [Not Recovered/Not Resolved]
  - Haemorrhage [Recovered/Resolved]
  - Hypotension [Recovered/Resolved]
  - Loss of consciousness [Recovered/Resolved]
  - Heart rate decreased [Recovered/Resolved]
  - Blood pressure abnormal [Recovered/Resolved]
  - Weight decreased [Unknown]

NARRATIVE: CASE EVENT DATE: 20250101
